FAERS Safety Report 22092869 (Version 1)
Quarter: 2023Q1

REPORT INFORMATION
  Report Type: Report from Study
  Country: FR (occurrence: FR)
  Receive Date: 20230314
  Receipt Date: 20230314
  Transmission Date: 20230418
  Serious: Yes (Other)
  Sender: FDA-Public Use
  Company Number: FR-VIIV HEALTHCARE LIMITED-FR2022EME135421

PATIENT

DRUGS (4)
  1. CABOTEGRAVIR [Suspect]
     Active Substance: CABOTEGRAVIR
     Indication: HIV test positive
     Dosage: UNK  1 DOSE OF EACH
     Route: 030
     Dates: start: 20220806
  2. CABOTEGRAVIR [Suspect]
     Active Substance: CABOTEGRAVIR
     Dosage: 1 DF, 1 DOSE OF EACH
     Route: 030
     Dates: start: 20221031, end: 20230306
  3. RILPIVIRINE [Suspect]
     Active Substance: RILPIVIRINE
     Indication: HIV test positive
     Dosage: UNK, 1 DOSE OF EACH
     Route: 030
     Dates: start: 20220806
  4. RILPIVIRINE [Suspect]
     Active Substance: RILPIVIRINE
     Dosage: UNK, 1 DOSE OF EACH
     Route: 030
     Dates: start: 20221031, end: 20230306

REACTIONS (5)
  - Erysipelas [Unknown]
  - Injection site pain [Recovered/Resolved]
  - Injection site infection [Unknown]
  - Injection site abscess [Unknown]
  - Injection site reaction [Not Recovered/Not Resolved]

NARRATIVE: CASE EVENT DATE: 20220806
